FAERS Safety Report 14241989 (Version 2)
Quarter: 2018Q4

REPORT INFORMATION
  Report Type: Report from Study
  Country: US (occurrence: US)
  Receive Date: 20171201
  Receipt Date: 20181121
  Transmission Date: 20190204
  Serious: No
  Sender: FDA-Public Use
  Company Number: PHEH2017US038299

PATIENT
  Age: 75 Year
  Sex: Female

DRUGS (1)
  1. COSENTYX [Suspect]
     Active Substance: SECUKINUMAB
     Indication: PSORIASIS
     Dosage: 300 MG, QMO
     Route: 058
     Dates: start: 201612, end: 201801

REACTIONS (5)
  - Urinary tract infection [Not Recovered/Not Resolved]
  - Anxiety [Unknown]
  - Cystitis [Not Recovered/Not Resolved]
  - Psoriasis [Unknown]
  - Injury [Unknown]

NARRATIVE: CASE EVENT DATE: 20171101
